FAERS Safety Report 6318561-4 (Version None)
Quarter: 2009Q3

REPORT INFORMATION
  Report Type: 
  Country: None (occurrence: None)
  Receive Date: 20090821
  Receipt Date: 20090817
  Transmission Date: 20100115
  Serious: Yes (Disabling)
  Sender: FDA-Public Use
  Company Number: PHEH2009US05050

PATIENT
  Sex: Female
  Weight: 92 kg

DRUGS (1)
  1. RECLAST [Suspect]
     Indication: OSTEOPOROSIS POSTMENOPAUSAL
     Dosage: 5 MG, YEARLY
     Route: 042
     Dates: start: 20080212, end: 20080212

REACTIONS (2)
  - ARTHRALGIA [None]
  - JOINT SWELLING [None]
